FAERS Safety Report 9324811 (Version 1)
Quarter: 2013Q2

REPORT INFORMATION
  Report Type: Spontaneous
  Country: US (occurrence: US)
  Receive Date: 20130603
  Receipt Date: 20130603
  Transmission Date: 20140414
  Serious: No
  Sender: FDA-Public Use
  Company Number: US-PFIZER INC-2013101725

PATIENT
  Age: 57 Year
  Sex: Male

DRUGS (3)
  1. VIAGRA [Suspect]
     Dosage: 100 MG (1/2 - 1 TABLET), AS NEEDED (1/2 HOUR BEFORE NEEDED)
  2. METAXALONE [Suspect]
     Indication: MUSCLE SPASMS
     Dosage: 800MG, AS NEEDED (ONE BID PRN)
  3. MELOXICAM [Suspect]
     Dosage: 15 MG, 1X/DAY (DAILY)

REACTIONS (1)
  - Headache [Recovered/Resolved]
